FAERS Safety Report 9447910 (Version 4)
Quarter: 2015Q3

REPORT INFORMATION
  Report Type: Report from Study
  Country: BR (occurrence: BR)
  Receive Date: 20130808
  Receipt Date: 20150825
  Transmission Date: 20151125
  Serious: Yes (Hospitalization, Other)
  Sender: FDA-Public Use
  Company Number: PHHY2013BR083886

PATIENT
  Age: 41 Year
  Sex: Male
  Weight: 41.5 kg

DRUGS (10)
  1. AZATHIOPRINE. [Suspect]
     Active Substance: AZATHIOPRINE
     Indication: RENAL TRANSPLANT
     Dosage: 100 MG, PER DAY
     Route: 065
     Dates: start: 19980626, end: 20080109
  2. PREDNISONE. [Suspect]
     Active Substance: PREDNISONE
     Indication: RENAL TRANSPLANT
     Dosage: 10 MG, PER DAY
     Route: 065
     Dates: start: 19980626
  3. PREDNISONE. [Suspect]
     Active Substance: PREDNISONE
     Indication: IMMUNOSUPPRESSION
     Dosage: 30 MG, QD
     Route: 065
  4. EVEROLIMUS [Suspect]
     Active Substance: EVEROLIMUS
     Dosage: 3 MG, QD
     Route: 048
  5. CICLOSPORIN [Suspect]
     Active Substance: CYCLOSPORINE
     Indication: RENAL TRANSPLANT
     Dosage: 350 MG, PER DAY
     Route: 048
     Dates: start: 19980626, end: 20010404
  6. TACROLIMUS. [Suspect]
     Active Substance: TACROLIMUS
     Indication: IMMUNOSUPPRESSION
     Dosage: UNK
     Route: 065
     Dates: end: 20080109
  7. AZATHIOPRINE. [Suspect]
     Active Substance: AZATHIOPRINE
     Indication: IMMUNOSUPPRESSION
     Dosage: 2 MG/KG, QD
     Route: 065
  8. CICLOSPORIN [Suspect]
     Active Substance: CYCLOSPORINE
     Indication: IMMUNOSUPPRESSION
     Dosage: 8 MG/KG, QD
     Route: 048
  9. EVEROLIMUS [Suspect]
     Active Substance: EVEROLIMUS
     Dosage: 2 MG, PER DAY
     Route: 048
     Dates: start: 20100225
  10. EVEROLIMUS [Suspect]
     Active Substance: EVEROLIMUS
     Indication: RENAL TRANSPLANT
     Dosage: 1 MG, PER DAY
     Route: 048
     Dates: start: 20080629, end: 20100224

REACTIONS (21)
  - Skin lesion [Recovered/Resolved]
  - Gastric ulcer helicobacter [Unknown]
  - Lymphadenopathy [Unknown]
  - Lower extremity mass [Recovered/Resolved]
  - Blood creatinine increased [Unknown]
  - Pneumonia [Recovered/Resolved]
  - Lung disorder [Unknown]
  - Gastric disorder [Unknown]
  - Night sweats [Unknown]
  - Creatinine renal clearance decreased [Unknown]
  - Pallor [Unknown]
  - Epstein-Barr virus infection [Unknown]
  - Diffuse large B-cell lymphoma [Recovering/Resolving]
  - Abdominal mass [Unknown]
  - Pyrexia [Unknown]
  - Splenomegaly [Unknown]
  - Peripheral T-cell lymphoma unspecified [Recovering/Resolving]
  - Cytomegalovirus infection [Unknown]
  - Weight decreased [Unknown]
  - Cachexia [Unknown]
  - Abdominal pain upper [Unknown]

NARRATIVE: CASE EVENT DATE: 200801
